FAERS Safety Report 19212384 (Version 1)
Quarter: 2021Q2

REPORT INFORMATION
  Report Type: Spontaneous
  Country: US (occurrence: US)
  Receive Date: 20210504
  Receipt Date: 20210504
  Transmission Date: 20210717
  Serious: Yes (Other)
  Sender: FDA-Public Use
  Company Number: US-AUROBINDO-AUR-APL-2019-088686

PATIENT
  Age: 3 Decade
  Sex: Male

DRUGS (3)
  1. ESCITALOPRAM [Suspect]
     Active Substance: ESCITALOPRAM OXALATE
     Indication: MAJOR DEPRESSION
     Dosage: UNK
     Route: 065
  2. SERTRALINE [Suspect]
     Active Substance: SERTRALINE HYDROCHLORIDE
     Indication: MAJOR DEPRESSION
     Dosage: UNK
     Route: 065
  3. BUPROPION. [Concomitant]
     Active Substance: BUPROPION
     Indication: MAJOR DEPRESSION
     Dosage: 300 MILLIGRAM
     Route: 065

REACTIONS (7)
  - Eye movement disorder [Recovered/Resolved]
  - Periodic limb movement disorder [Recovering/Resolving]
  - Pain in jaw [Recovering/Resolving]
  - Fatigue [Recovered/Resolved]
  - Headache [Recovering/Resolving]
  - Restlessness [Recovered/Resolved]
  - Drug ineffective [Recovered/Resolved]
